FAERS Safety Report 11389049 (Version 1)
Quarter: 2015Q3

REPORT INFORMATION
  Report Type: Report from Study
  Country: US (occurrence: US)
  Receive Date: 20150817
  Receipt Date: 20150817
  Transmission Date: 20151125
  Serious: Yes (Death, Hospitalization)
  Sender: FDA-Public Use
  Company Number: US-B.I. PHARMACEUTICALS,INC./RIDGEFIELD-2015-BI-07237BI

PATIENT
  Sex: Female

DRUGS (1)
  1. GILOTRIF [Suspect]
     Active Substance: AFATINIB
     Indication: NON-SMALL CELL LUNG CANCER STAGE II
     Dosage: 40 MG
     Route: 048
     Dates: start: 20150127

REACTIONS (6)
  - Pneumonitis [Fatal]
  - Malignant neoplasm progression [Fatal]
  - Diarrhoea [Unknown]
  - Back pain [Unknown]
  - Inflammation [Unknown]
  - Stomatitis [Unknown]
